FAERS Safety Report 12468349 (Version 1)
Quarter: 2016Q2

REPORT INFORMATION
  Report Type: Report from Study
  Country: RU (occurrence: RU)
  Receive Date: 20160615
  Receipt Date: 20160615
  Transmission Date: 20160815
  Serious: Yes (Other)
  Sender: FDA-Public Use
  Company Number: RU-BAXTER-2016BAX031782

PATIENT
  Age: 3 Year
  Sex: Male

DRUGS (5)
  1. CARBOPLATIN. [Concomitant]
     Active Substance: CARBOPLATIN
     Indication: MEDULLOBLASTOMA
     Route: 065
  2. ENDOKSAN POROSHOK DLJA PRIGOTOVLENIJA RASTVORA DLJA VNUTRIVENNOGO VVED [Suspect]
     Active Substance: CYCLOPHOSPHAMIDE
     Indication: MEDULLOBLASTOMA
     Dosage: 1500 MG/M2 X 3
     Route: 065
  3. ETOPOSIDE. [Concomitant]
     Active Substance: ETOPOSIDE
     Indication: MEDULLOBLASTOMA
     Route: 065
  4. METOTREXAT [Concomitant]
     Active Substance: METHOTREXATE SODIUM
     Indication: MEDULLOBLASTOMA
     Route: 037
  5. THIOTEPA. [Suspect]
     Active Substance: THIOTEPA
     Indication: MEDULLOBLASTOMA
     Dosage: 300 MG/M2 X 3
     Route: 065

REACTIONS (1)
  - Skin toxicity [Unknown]
